FAERS Safety Report 21200776 (Version 1)
Quarter: 2022Q3

REPORT INFORMATION
  Report Type: Spontaneous
  Country: AU (occurrence: AU)
  Receive Date: 20220811
  Receipt Date: 20220811
  Transmission Date: 20221027
  Serious: Yes (Other)
  Sender: FDA-Public Use
  Company Number: AU-SA-2022SA320016

PATIENT
  Age: 31 Year
  Sex: Female

DRUGS (2)
  1. ALEMTUZUMAB [Suspect]
     Active Substance: ALEMTUZUMAB
     Indication: Multiple sclerosis
     Dosage: UNK
     Dates: start: 201805
  2. ALEMTUZUMAB [Suspect]
     Active Substance: ALEMTUZUMAB
     Dosage: UNK
     Dates: start: 201905

REACTIONS (4)
  - Acquired haemophilia [Recovered/Resolved]
  - Increased tendency to bruise [Recovered/Resolved]
  - Heavy menstrual bleeding [Recovered/Resolved]
  - Autoimmune thyroid disorder [Recovered/Resolved]

NARRATIVE: CASE EVENT DATE: 20200301
